FAERS Safety Report 16290257 (Version 1)
Quarter: 2019Q2

REPORT INFORMATION
  Report Type: Report from Study
  Country: US (occurrence: US)
  Receive Date: 20190509
  Receipt Date: 20190509
  Transmission Date: 20190711
  Serious: Yes (Other)
  Sender: FDA-Public Use
  Company Number: US-JNJFOC-20190421753

PATIENT
  Sex: Male

DRUGS (14)
  1. IMBRUVICA [Suspect]
     Active Substance: IBRUTINIB
     Indication: CHRONIC LYMPHOCYTIC LEUKAEMIA
     Route: 048
     Dates: start: 20170109, end: 20180405
  2. CORMAX [Concomitant]
     Active Substance: CLOBETASOL PROPIONATE
  3. OXYBUTYNIN. [Concomitant]
     Active Substance: OXYBUTYNIN CHLORIDE
  4. SILDENAFIL. [Concomitant]
     Active Substance: SILDENAFIL
  5. MUPIROCIN. [Concomitant]
     Active Substance: MUPIROCIN
  6. ACETAMINOPHEN. [Concomitant]
     Active Substance: ACETAMINOPHEN
  7. CLARITIN [Concomitant]
     Active Substance: LORATADINE
  8. MUCINEX [Concomitant]
     Active Substance: GUAIFENESIN
  9. PROAIR HFA [Concomitant]
     Active Substance: ALBUTEROL SULFATE
  10. IMBRUVICA [Suspect]
     Active Substance: IBRUTINIB
     Indication: CHRONIC LYMPHOCYTIC LEUKAEMIA
     Route: 048
     Dates: start: 20180406
  11. FLONASE [Concomitant]
     Active Substance: FLUTICASONE PROPIONATE
  12. METOPROLOL. [Concomitant]
     Active Substance: METOPROLOL
  13. DOXAZOSIN [Concomitant]
     Active Substance: DOXAZOSIN\DOXAZOSIN MESYLATE
  14. VALTREX [Concomitant]
     Active Substance: VALACYCLOVIR HYDROCHLORIDE

REACTIONS (2)
  - Hypersensitivity [Not Recovered/Not Resolved]
  - Renal cyst haemorrhage [Not Recovered/Not Resolved]
